FAERS Safety Report 6681990-3 (Version None)
Quarter: 2010Q2

REPORT INFORMATION
  Report Type: 
  Country: None (occurrence: None)
  Receive Date: 20100414
  Receipt Date: 20100414
  Transmission Date: 20101027
  Serious: Yes (Other)
  Sender: FDA-Public Use
  Company Number: None

PATIENT
  Age: 57 Year
  Sex: Male
  Weight: 83.9154 kg

DRUGS (2)
  1. PREDNISONE [Suspect]
     Indication: NASAL CONGESTION
     Dosage: 10 MG 3/3 DAYS 2/3 AND 1/3 EARLY TO MID JANUARY '10
     Dates: start: 20100101
  2. LEVAQUIN [Suspect]
     Indication: INFECTION
     Dosage: 500 MG 1/DAY FOR 2 WEEKS

REACTIONS (2)
  - ANXIETY [None]
  - EMOTIONAL DISTRESS [None]
